FAERS Safety Report 6842369-4 (Version None)
Quarter: 2010Q3

REPORT INFORMATION
  Report Type: 
  Country: None (occurrence: None)
  Receive Date: 20100714
  Receipt Date: 20070726
  Transmission Date: 20110219
  Serious: No
  Sender: FDA-Public Use
  Company Number: US-PFIZER INC-2007063366

PATIENT
  Sex: Female
  Weight: 101.6 kg

DRUGS (5)
  1. CHANTIX [Suspect]
     Indication: SMOKING CESSATION THERAPY
     Dates: start: 20070621
  2. DRUG, UNSPECIFIED [Concomitant]
  3. VALSARTAN [Concomitant]
  4. TEMAZEPAM [Concomitant]
  5. TRAZODONE HYDROCHLORIDE [Concomitant]

REACTIONS (6)
  - DISTURBANCE IN ATTENTION [None]
  - DIZZINESS [None]
  - FEELING JITTERY [None]
  - LETHARGY [None]
  - SOMNOLENCE [None]
  - UNEVALUABLE EVENT [None]
